FAERS Safety Report 8470599 (Version 2)
Quarter: 2013Q3

REPORT INFORMATION
  Report Type: Spontaneous
  Country: US (occurrence: None)
  Receive Date: 20120314
  Receipt Date: 20130718
  Transmission Date: 20140515
  Serious: Yes (Disabling, Other)
  Sender: FDA-Public Use
  Company Number: 2012AP000621

PATIENT
  Age: 73 Year
  Sex: Female

DRUGS (2)
  1. ALENDRONATE SODIUM [Suspect]
     Indication: OSTEOPOROSIS
     Dates: start: 200908, end: 201004
  2. ALENDRONATE SODIUM [Suspect]
     Indication: OSTEOPOROSIS
     Dates: start: 200112, end: 200907

REACTIONS (11)
  - Femur fracture [None]
  - Stress fracture [None]
  - Bone density decreased [None]
  - Low turnover osteopathy [None]
  - Pain [None]
  - Anxiety [None]
  - Anhedonia [None]
  - Quality of life decreased [None]
  - Terminal state [None]
  - Pre-existing disease [None]
  - Condition aggravated [None]
